FAERS Safety Report 16382632 (Version 1)
Quarter: 2019Q2

REPORT INFORMATION
  Report Type: Spontaneous
  Country: US (occurrence: US)
  Receive Date: 20190426
  Receipt Date: 20190426
  Transmission Date: 20190711
  Serious: Yes (Life-Threatening)
  Sender: FDA-Public Use
  Company Number: None

PATIENT
  Age: 39 Year
  Sex: Female
  Weight: 84.82 kg

DRUGS (7)
  1. PAMPRIN [Concomitant]
     Active Substance: IBUPROFEN
  2. ABILIFY [Concomitant]
     Active Substance: ARIPIPRAZOLE
  3. NUVIGIL [Concomitant]
     Active Substance: ARMODAFINIL
  4. TRAZODONE [Concomitant]
     Active Substance: TRAZODONE HYDROCHLORIDE
  5. ABILIFY MAINTENA [Suspect]
     Active Substance: ARIPIPRAZOLE
     Indication: SCHIZOAFFECTIVE DISORDER
     Dates: start: 20030214, end: 20190418
  6. INTUNIV [Concomitant]
     Active Substance: GUANFACINE HYDROCHLORIDE
  7. VITAMIN E [Concomitant]
     Active Substance: .ALPHA.-TOCOPHEROL

REACTIONS (3)
  - Narcolepsy [None]
  - Haemochromatosis [None]
  - Discomfort [None]

NARRATIVE: CASE EVENT DATE: 20190418
